FAERS Safety Report 14356234 (Version 1)
Quarter: 2018Q1

REPORT INFORMATION
  Report Type: Spontaneous
  Country: US (occurrence: US)
  Receive Date: 20180104
  Receipt Date: 20180104
  Transmission Date: 20180509
  Serious: No
  Sender: FDA-Public Use
  Company Number: None

PATIENT
  Age: 74 Year
  Sex: Female

DRUGS (1)
  1. SIMPONI ARIA [Suspect]
     Active Substance: GOLIMUMAB
     Indication: RHEUMATOID ARTHRITIS
     Dosage: 2MG/KG EVERY 8 WEEKS INTRAVENOUSLY OVER 30 MINUTES
     Route: 042
     Dates: start: 201711, end: 201712

REACTIONS (1)
  - Renal disorder [None]

NARRATIVE: CASE EVENT DATE: 20180103
